FAERS Safety Report 10020039 (Version 2)
Quarter: 2014Q1

REPORT INFORMATION
  Report Type: Spontaneous
  Country: US (occurrence: US)
  Receive Date: 20140318
  Receipt Date: 20140318
  Transmission Date: 20141002
  Serious: Yes (Other)
  Sender: FDA-Public Use
  Company Number: US-RB-061944-13

PATIENT
  Age: 22 Year
  Sex: Female
  Weight: 45 kg

DRUGS (3)
  1. GENERIC BUPRENORPHINE [Suspect]
     Indication: PRODUCT USED FOR UNKNOWN INDICATION
     Route: 065
  2. SUBOXONE FILM [Suspect]
     Indication: DRUG DEPENDENCE
     Dosage: SUBOXONE FILM
     Route: 060
     Dates: start: 201311, end: 201311
  3. SUBUTEX [Suspect]
     Indication: DRUG DEPENDENCE
     Route: 060
     Dates: start: 201311, end: 20131120

REACTIONS (8)
  - Maternal exposure during pregnancy [Recovered/Resolved]
  - Amniocentesis abnormal [Recovered/Resolved]
  - Pre-eclampsia [Recovered/Resolved]
  - Substance abuse [Recovered/Resolved]
  - Eclampsia [Unknown]
  - Premature labour [Recovered/Resolved]
  - Premature delivery [Recovered/Resolved]
  - Hypertension [Unknown]
